FAERS Safety Report 21087680 (Version 3)
Quarter: 2023Q1

REPORT INFORMATION
  Report Type: Spontaneous
  Country: GB (occurrence: GB)
  Receive Date: 20220715
  Receipt Date: 20230110
  Transmission Date: 20230418
  Serious: Yes (Hospitalization, Other)
  Sender: FDA-Public Use
  Company Number: GB-CELGENE-GBR-2016126775

PATIENT
  Age: 70 Year
  Sex: Male
  Weight: 90 kg

DRUGS (23)
  1. DARZALEX [Suspect]
     Active Substance: DARATUMUMAB
     Indication: Plasma cell myeloma
     Dosage: 1480 MG
     Route: 042
     Dates: start: 20161130, end: 20161214
  2. REVLIMID [Suspect]
     Active Substance: LENALIDOMIDE
     Indication: Plasma cell myeloma
     Dosage: 25 MG
     Route: 048
     Dates: start: 20161130
  3. REVLIMID [Suspect]
     Active Substance: LENALIDOMIDE
     Dosage: 25 MG
     Route: 048
     Dates: start: 20161130
  4. REVLIMID [Suspect]
     Active Substance: LENALIDOMIDE
     Dosage: 19 MG
     Route: 065
  5. REVLIMID [Suspect]
     Active Substance: LENALIDOMIDE
     Dosage: 19 MG
     Route: 065
     Dates: start: 20161214, end: 20161214
  6. REVLIMID [Suspect]
     Active Substance: LENALIDOMIDE
     Dosage: 19 MG
     Route: 065
     Dates: start: 20161130, end: 20161219
  7. REVLIMID [Suspect]
     Active Substance: LENALIDOMIDE
     Dosage: 19 MG
     Route: 065
     Dates: start: 20161130
  8. DICLOFENAC [Suspect]
     Active Substance: DICLOFENAC
     Indication: Plasma cell myeloma
     Route: 048
     Dates: start: 20161130
  9. DICLOFENAC [Suspect]
     Active Substance: DICLOFENAC
     Route: 065
  10. DEXAMETHASONE [Suspect]
     Active Substance: DEXAMETHASONE
     Indication: Plasma cell myeloma
     Route: 042
     Dates: start: 20161130, end: 20161214
  11. TAMSULOSIN [Concomitant]
     Active Substance: TAMSULOSIN
     Indication: Urinary retention
     Dosage: 400 MICROGRAM
     Route: 065
     Dates: start: 20170313
  12. OMEPRAZOLE [Concomitant]
     Active Substance: OMEPRAZOLE
     Indication: Plasma cell myeloma
     Route: 065
     Dates: start: 20161130
  13. AMOXICILLIN [Concomitant]
     Active Substance: AMOXICILLIN
     Indication: Product used for unknown indication
     Dosage: 3 GRAM
     Route: 065
     Dates: start: 20170312, end: 20180316
  14. GENTAMICIN [Concomitant]
     Active Substance: GENTAMICIN
     Indication: Product used for unknown indication
     Dosage: 560 MILLIGRAM
     Route: 065
     Dates: start: 20170312, end: 20180515
  15. HYDROCORTISONE [Concomitant]
     Active Substance: HYDROCORTISONE
     Indication: Flushing
     Route: 065
     Dates: start: 20170309, end: 20170309
  16. METRONIDAZOLE [Concomitant]
     Active Substance: METRONIDAZOLE
     Indication: Product used for unknown indication
     Dosage: 1500 MILLIGRAM
     Route: 065
     Dates: start: 20170312, end: 20180315
  17. ALLOPURINOL [Concomitant]
     Active Substance: ALLOPURINOL
     Indication: Chemotherapy
     Dosage: 300 MILLIGRAM
     Route: 065
     Dates: start: 20161130
  18. AMOXICILLIN\CLAVULANATE POTASSIUM [Concomitant]
     Active Substance: AMOXICILLIN\CLAVULANATE POTASSIUM
     Indication: Prophylaxis
     Route: 065
     Dates: start: 20170316, end: 20171202
  19. ZOMETA [Concomitant]
     Active Substance: ZOLEDRONIC ACID
     Indication: Product used for unknown indication
     Route: 065
     Dates: start: 20170113
  20. PIPERACILLIN SODIUM\TAZOBACTAM SODIUM [Concomitant]
     Active Substance: PIPERACILLIN SODIUM\TAZOBACTAM SODIUM
     Indication: Pyrexia
     Route: 065
     Dates: start: 20170312, end: 20180312
  21. CHLORPHENIRAMINE MALEATE [Concomitant]
     Active Substance: CHLORPHENIRAMINE MALEATE
     Indication: Flushing
     Dates: start: 20170309, end: 20170309
  22. ENSURE [Concomitant]
     Active Substance: AMINO ACIDS\DEXTROSE\ELECTROLYTES NOS\SOYBEAN OIL\VITAMINS
     Indication: Decreased appetite
     Dates: start: 20161230
  23. CIPROFLOXACIN [Concomitant]
     Active Substance: CIPROFLOXACIN
     Indication: Product used for unknown indication
     Dosage: 1000 MILLIGRAM
     Dates: start: 20170316, end: 20170606

REACTIONS (5)
  - Back pain [Recovering/Resolving]
  - Hypoaesthesia [Not Recovered/Not Resolved]
  - Diverticular perforation [Recovered/Resolved]
  - Pulmonary embolism [Recovered/Resolved]
  - Intentional product use issue [Unknown]

NARRATIVE: CASE EVENT DATE: 20161130
